FAERS Safety Report 13631783 (Version 1)
Quarter: 2017Q2

REPORT INFORMATION
  Report Type: Spontaneous
  Country: US (occurrence: US)
  Receive Date: 20170531
  Receipt Date: 20170531
  Transmission Date: 20170830
  Serious: No
  Sender: FDA-Public Use
  Company Number: US-ASTELLAS-1414346

PATIENT
  Sex: Male

DRUGS (2)
  1. TARCEVA [Suspect]
     Active Substance: ERLOTINIB HYDROCHLORIDE
     Indication: LUNG NEOPLASM MALIGNANT
     Dosage: DAILY
     Route: 048
     Dates: start: 20140424
  2. DEXAMETHASON [Concomitant]
     Active Substance: DEXAMETHASONE

REACTIONS (3)
  - Nasal ulcer [Unknown]
  - Rash pustular [Recovering/Resolving]
  - Rash [Unknown]
